FAERS Safety Report 7459424-0 (Version None)
Quarter: 2011Q2

REPORT INFORMATION
  Report Type: 
  Country: None (occurrence: None)
  Receive Date: 20110505
  Receipt Date: 20110420
  Transmission Date: 20111010
  Serious: Yes (Hospitalization)
  Sender: FDA-Public Use
  Company Number: US-JNJFOC-20110501022

PATIENT
  Age: 38 Year
  Sex: Male

DRUGS (5)
  1. HALDOL DECONATE [Suspect]
     Indication: PRODUCT USED FOR UNKNOWN INDICATION
     Dosage: AT BEDTIME
     Route: 065
  2. ATIVAN [Concomitant]
     Route: 048
  3. RISPERDAL [Suspect]
     Dosage: DRUG STOP DATE - 2011 (DATE UNSPECIFIED)
     Route: 048
  4. RISPERDAL [Suspect]
     Indication: PRODUCT USED FOR UNKNOWN INDICATION
     Dosage: AT BEDTIME
     Route: 048
  5. HYDROXYZINE [Concomitant]
     Route: 048

REACTIONS (2)
  - HOSPITALISATION [None]
  - POLYDIPSIA [None]
